FAERS Safety Report 11839941 (Version 1)
Quarter: 2015Q4

REPORT INFORMATION
  Report Type: Spontaneous
  Country: US (occurrence: None)
  Receive Date: 20151215
  Receipt Date: 20151215
  Transmission Date: 20160305
  Serious: No
  Sender: FDA-Public Use
  Company Number: None

PATIENT
  Age: 67 Year
  Sex: Male

DRUGS (3)
  1. SUTENT [Suspect]
     Active Substance: SUNITINIB MALATE
     Dosage: 1 CAPSULE  ON DAS 1-28 OF 42  ORAL
     Route: 048
     Dates: start: 20151104
  2. ATENOLOL. [Concomitant]
     Active Substance: ATENOLOL
  3. PRAVASTATIN [Concomitant]
     Active Substance: PRAVASTATIN\PRAVASTATIN SODIUM

REACTIONS (5)
  - Chromaturia [None]
  - Asthenia [None]
  - Bone pain [None]
  - Hyperbilirubinaemia [None]
  - Oral pain [None]

NARRATIVE: CASE EVENT DATE: 20151130
